FAERS Safety Report 6516675-7 (Version None)
Quarter: 2009Q4

REPORT INFORMATION
  Report Type: 
  Country: None (occurrence: None)
  Receive Date: 20091216
  Receipt Date: 20090605
  Transmission Date: 20100525
  Serious: Yes (Other)
  Sender: FDA-Public Use
  Company Number: JHP200900179

PATIENT
  Sex: Male

DRUGS (2)
  1. PITOCIN [Suspect]
     Indication: LABOUR INDUCTION
     Dosage: 125 CC, TRANSPLACENTAL
     Route: 064
     Dates: start: 20081101, end: 20081101
  2. PROSTAGLANDINS () [Suspect]
     Indication: PREMEDICATION
     Dates: start: 20080101

REACTIONS (3)
  - DRUG EXPOSURE DURING PREGNANCY [None]
  - FOETAL HEART RATE DECELERATION [None]
  - RETINAL HAEMORRHAGE [None]
